FAERS Safety Report 12562084 (Version 1)
Quarter: 2016Q3

REPORT INFORMATION
  Report Type: Report from Study
  Country: US (occurrence: US)
  Receive Date: 20160715
  Receipt Date: 20160715
  Transmission Date: 20161109
  Serious: Yes (Hospitalization)
  Sender: FDA-Public Use
  Company Number: US-MALLINCKRODT-T201602880

PATIENT
  Age: 53 Year
  Sex: Male

DRUGS (2)
  1. REPOSITORY CORTICOTROPIN INJECTION [Suspect]
     Active Substance: CORTICOTROPIN
     Dosage: 80 UNITS / 1 ML, 2 TIMES PER WEEK (WED/SUNDAY)
     Route: 058
     Dates: start: 20150428, end: 20150805
  2. REPOSITORY CORTICOTROPIN INJECTION [Suspect]
     Active Substance: CORTICOTROPIN
     Indication: RHEUMATOID ARTHRITIS
     Dosage: 0 UNITS / 1 ML, 2 TIMES PER WEEK (WED/SUNDAY)
     Route: 058

REACTIONS (1)
  - Pancreatic disorder [Recovered/Resolved]

NARRATIVE: CASE EVENT DATE: 20160621
